FAERS Safety Report 21366456 (Version 1)
Quarter: 2022Q3

REPORT INFORMATION
  Report Type: Report from Study
  Country: US (occurrence: US)
  Receive Date: 20220923
  Receipt Date: 20220923
  Transmission Date: 20221026
  Serious: No
  Sender: FDA-Public Use
  Company Number: US-ABBVIE-22K-163-4356391-00

PATIENT
  Sex: Male

DRUGS (1)
  1. IMBRUVICA [Suspect]
     Active Substance: IBRUTINIB
     Indication: Chronic lymphocytic leukaemia
     Route: 048
     Dates: start: 20220309

REACTIONS (16)
  - Pain [Unknown]
  - Respiratory tract congestion [Unknown]
  - White blood cell count increased [Recovering/Resolving]
  - Pyrexia [Unknown]
  - Nightmare [Recovering/Resolving]
  - Headache [Unknown]
  - Somnolence [Not Recovered/Not Resolved]
  - Somnolence [Recovered/Resolved]
  - Palpitations [Recovering/Resolving]
  - Petechiae [Not Recovered/Not Resolved]
  - COVID-19 [Recovering/Resolving]
  - Heart rate increased [Unknown]
  - Abnormal dreams [Recovering/Resolving]
  - Blood blister [Not Recovered/Not Resolved]
  - Oropharyngeal pain [Unknown]
  - Immunodeficiency [Recovering/Resolving]

NARRATIVE: CASE EVENT DATE: 20220101
